FAERS Safety Report 24780747 (Version 1)
Quarter: 2024Q4

REPORT INFORMATION
  Report Type: Report from Study
  Country: JP (occurrence: JP)
  Receive Date: 20241227
  Receipt Date: 20241227
  Transmission Date: 20250115
  Serious: Yes (Other)
  Sender: ABBVIE
  Company Number: JP-ABBVIE-5790124

PATIENT
  Age: 55 Year
  Sex: Male

DRUGS (1)
  1. FOSCARBIDOPA\FOSLEVODOPA [Suspect]
     Active Substance: FOSCARBIDOPA\FOSLEVODOPA
     Indication: Parkinson^s disease
     Dosage: DURING DAY: 0.21-0.22 ML/H, DURING NIGHT: 0.15 ML/H
     Route: 058
     Dates: start: 20240509

REACTIONS (20)
  - Deep brain stimulation [Unknown]
  - Feeling abnormal [Unknown]
  - Localised oedema [Unknown]
  - Infusion site reaction [Unknown]
  - Infusion site induration [Unknown]
  - Infusion site reaction [Unknown]
  - Therapeutic product effect incomplete [Unknown]
  - Infusion site induration [Unknown]
  - Therapeutic product effect incomplete [Unknown]
  - Infusion site reaction [Unknown]
  - Infusion site reaction [Unknown]
  - Infusion site discharge [Unknown]
  - Muscular weakness [Unknown]
  - Fatigue [Unknown]
  - Malaise [Unknown]
  - Feeling abnormal [Unknown]
  - Infusion site discharge [Unknown]
  - Fat tissue increased [Unknown]
  - Infusion site erythema [Unknown]
  - Infusion site reaction [Unknown]

NARRATIVE: CASE EVENT DATE: 20240101
